FAERS Safety Report 6477427-X (Version None)
Quarter: 2009Q4

REPORT INFORMATION
  Report Type: 
  Country: None (occurrence: None)
  Receive Date: 20091207
  Receipt Date: 20091106
  Transmission Date: 20100525
  Serious: Yes (Death)
  Sender: FDA-Public Use
  Company Number: ES-SANOFI-AVENTIS-2009SA000208

PATIENT
  Age: 65 Year
  Sex: Female
  Weight: 80 kg

DRUGS (13)
  1. CLEXANE [Suspect]
     Route: 058
  2. CLEXANE [Suspect]
     Indication: PERCUTANEOUS CORONARY INTERVENTION
     Route: 058
  3. CLEXANE [Suspect]
     Route: 065
     Dates: start: 20090728, end: 20090728
  4. CLEXANE [Suspect]
     Route: 065
     Dates: start: 20090728, end: 20090728
  5. PLAVIX [Concomitant]
  6. ATORVASTATIN [Concomitant]
  7. PULMICORT [Concomitant]
  8. ATROVENT [Concomitant]
  9. UNIKET [Concomitant]
  10. ENALAPRIL [Concomitant]
  11. OMEPRAZOLE [Concomitant]
  12. FERROUS SULFATE TAB [Concomitant]
  13. ADIRO [Concomitant]

REACTIONS (3)
  - CARDIOGENIC SHOCK [None]
  - CORONARY ARTERY THROMBOSIS [None]
  - DRUG INEFFECTIVE [None]
